FAERS Safety Report 9204072 (Version 1)
Quarter: 2013Q2

REPORT INFORMATION
  Report Type: Spontaneous
  Country: US (occurrence: US)
  Receive Date: 20130402
  Receipt Date: 20130402
  Transmission Date: 20140414
  Serious: Yes (Hospitalization)
  Sender: FDA-Public Use
  Company Number: PHEH2013US007406

PATIENT
  Age: 70 Year
  Sex: Female

DRUGS (1)
  1. EXELON PATCH [Suspect]
     Dosage: UNK UKN, DAILY
     Route: 062

REACTIONS (4)
  - Pneumonia [Unknown]
  - Respiratory tract congestion [Unknown]
  - Pyrexia [Unknown]
  - Incorrect dose administered [Unknown]
